FAERS Safety Report 21937515 (Version 1)
Quarter: 2023Q1

REPORT INFORMATION
  Report Type: Spontaneous
  Country: US (occurrence: US)
  Receive Date: 20230201
  Receipt Date: 20230201
  Transmission Date: 20230418
  Serious: Yes (Death, Hospitalization, Other)
  Sender: FDA-Public Use
  Company Number: US-PFIZER INC-202300042538

PATIENT
  Age: 48 Year
  Sex: Female

DRUGS (4)
  1. HYDROXYZINE PAMOATE [Suspect]
     Active Substance: HYDROXYZINE PAMOATE
     Dosage: ROUTE:INGESTION
  2. RISPERIDONE [Suspect]
     Active Substance: RISPERIDONE
     Dosage: ROUTE:INGESTION
  3. QUETIAPINE [Suspect]
     Active Substance: QUETIAPINE
     Dosage: ROUTE:INGESTION
  4. LAMOTRIGINE [Suspect]
     Active Substance: LAMOTRIGINE
     Dosage: ROUTE:INGESTION

REACTIONS (1)
  - Completed suicide [Fatal]

NARRATIVE: CASE EVENT DATE: 20210101
